FAERS Safety Report 5699438-4 (Version None)
Quarter: 2008Q2

REPORT INFORMATION
  Report Type: 
  Country: None (occurrence: None)
  Receive Date: 20080407
  Receipt Date: 20080407
  Transmission Date: 20081010
  Serious: Yes (Life-Threatening, Hospitalization, Other)
  Sender: FDA-Public Use
  Company Number: None

PATIENT
  Age: 8 Year
  Sex: Male
  Weight: 29.4838 kg

DRUGS (2)
  1. SINGULAIR [Suspect]
     Indication: ASTHMA
     Dosage: 5MG CHEWABLE TABLET ONCE A DAY PO
     Route: 048
     Dates: start: 19980301, end: 20050827
  2. SINGULAIR [Suspect]
     Indication: ASTHMA
     Dosage: 10 MG TABLET ONCE A DAY PO
     Route: 048
     Dates: start: 20050828, end: 20061114

REACTIONS (6)
  - ABDOMINAL PAIN UPPER [None]
  - MAJOR DEPRESSION [None]
  - NIGHTMARE [None]
  - PAIN IN EXTREMITY [None]
  - SOMNOLENCE [None]
  - SUICIDAL IDEATION [None]
